FAERS Safety Report 15196615 (Version 2)
Quarter: 2018Q3

REPORT INFORMATION
  Report Type: Spontaneous
  Country: IT (occurrence: IT)
  Receive Date: 20180725
  Receipt Date: 20180801
  Transmission Date: 20181010
  Serious: Yes (Hospitalization)
  Sender: FDA-Public Use
  Company Number: IT-EISAI MEDICAL RESEARCH-EC-2018-043054

PATIENT
  Age: 26 Year
  Sex: Female

DRUGS (6)
  1. FYCOMPA [Suspect]
     Active Substance: PERAMPANEL
     Route: 048
     Dates: start: 20180718, end: 20180718
  2. GIZORD [Suspect]
     Active Substance: LAMOTRIGINE
     Indication: PRODUCT USED FOR UNKNOWN INDICATION
     Dosage: UNKNOWN
     Route: 048
     Dates: end: 201801
  3. ZONISAMIDE. [Concomitant]
     Active Substance: ZONISAMIDE
     Indication: PRODUCT USED FOR UNKNOWN INDICATION
     Route: 048
     Dates: start: 2007
  4. FYCOMPA [Suspect]
     Active Substance: PERAMPANEL
     Indication: PRODUCT USED FOR UNKNOWN INDICATION
     Route: 048
     Dates: start: 20160215, end: 20180717
  5. GIZORD [Suspect]
     Active Substance: LAMOTRIGINE
     Route: 048
     Dates: start: 201801, end: 20180717
  6. GIZORD [Suspect]
     Active Substance: LAMOTRIGINE
     Route: 048
     Dates: start: 20180718, end: 20180718

REACTIONS (6)
  - Intentional overdose [Unknown]
  - Intentional self-injury [Unknown]
  - Agitation [Unknown]
  - Ataxia [Unknown]
  - Sopor [Unknown]
  - Diplopia [Unknown]

NARRATIVE: CASE EVENT DATE: 20180718
